FAERS Safety Report 20611592 (Version 1)
Quarter: 2022Q1

REPORT INFORMATION
  Report Type: Spontaneous
  Country: JP (occurrence: None)
  Receive Date: 20220318
  Receipt Date: 20220318
  Transmission Date: 20220423
  Serious: Yes (Other)
  Sender: FDA-Public Use
  Company Number: 2022A113549

PATIENT
  Age: 85 Year

DRUGS (1)
  1. LOKELMA [Suspect]
     Active Substance: SODIUM ZIRCONIUM CYCLOSILICATE
     Dosage: 10 MG EVERY DAY, AFTER DINNER, ON NON-DIALYSIS DAY
     Route: 048

REACTIONS (1)
  - Blood potassium increased [Unknown]
